FAERS Safety Report 6539119-8 (Version None)
Quarter: 2010Q1

REPORT INFORMATION
  Report Type: 
  Country: None (occurrence: None)
  Receive Date: 20100115
  Receipt Date: 20100112
  Transmission Date: 20100710
  Serious: Yes (Death)
  Sender: FDA-Public Use
  Company Number: PHEH2009US13236

PATIENT
  Sex: Male
  Weight: 43 kg

DRUGS (17)
  1. EXJADE [Suspect]
     Indication: APLASTIC ANAEMIA
     Dosage: 750 MG DAILY
     Route: 048
  2. EXJADE [Suspect]
     Indication: IRON OVERLOAD
  3. FK 506 [Concomitant]
     Route: 042
  4. PREDNISONE [Concomitant]
     Route: 042
  5. IG GAMMA [Concomitant]
  6. ANIDULAFUNGIN [Concomitant]
     Route: 042
  7. ASACOL [Concomitant]
     Route: 048
  8. LEXAPRO [Concomitant]
  9. FAMVIR [Concomitant]
     Route: 042
  10. NEUPOGEN [Concomitant]
     Route: 042
  11. LINEZOLID [Concomitant]
     Route: 042
  12. MEROPENEM [Concomitant]
     Route: 042
  13. NIFEDIPINE [Concomitant]
     Route: 042
  14. EPOGEN [Concomitant]
  15. ACTIGALL [Concomitant]
     Route: 048
  16. VITAMIN D [Concomitant]
  17. MICONAZOLE [Concomitant]

REACTIONS (3)
  - DEATH [None]
  - DIARRHOEA [None]
  - VOMITING [None]
